FAERS Safety Report 6614222-2 (Version None)
Quarter: 2010Q1

REPORT INFORMATION
  Report Type: 
  Country: None (occurrence: None)
  Receive Date: 20100303
  Receipt Date: 20100303
  Transmission Date: 20100710
  Serious: Yes (Life-Threatening, Hospitalization)
  Sender: FDA-Public Use
  Company Number: None

PATIENT
  Age: 71 Year
  Sex: Male
  Weight: 84.1 kg

DRUGS (2)
  1. CLINDAMYCIN [Suspect]
     Indication: GINGIVAL INFECTION
     Dosage: 300 MG EVERY 8 HOURS 047
     Route: 048
     Dates: start: 20091214
  2. CLINDAMYCIN [Suspect]
     Indication: GINGIVAL INFECTION
     Dosage: 300 MG EVERY 8 HOURS 047
     Route: 048
     Dates: start: 20091215

REACTIONS (1)
  - UPPER GASTROINTESTINAL HAEMORRHAGE [None]
